FAERS Safety Report 6370602-4 (Version None)
Quarter: 2009Q3

REPORT INFORMATION
  Report Type: 
  Country: None (occurrence: None)
  Receive Date: 20090921
  Receipt Date: 20090921
  Transmission Date: 20100115
  Serious: Yes (Other)
  Sender: FDA-Public Use
  Company Number: None

PATIENT
  Age: 42 Year
  Sex: Female
  Weight: 77.1115 kg

DRUGS (2)
  1. MOTRIN [Suspect]
     Indication: INFLUENZA
     Dosage: 800MG 1 TABLET
     Dates: start: 20090829
  2. BACTRIM [Suspect]
     Indication: SINUSITIS
     Dosage: 2WKS SUPPLY
     Dates: start: 20090820

REACTIONS (5)
  - BLOOD URINE PRESENT [None]
  - INFLUENZA [None]
  - OCULAR HYPERAEMIA [None]
  - PHOTOPHOBIA [None]
  - PRURITUS [None]
